FAERS Safety Report 9543383 (Version 1)
Quarter: 2013Q3

REPORT INFORMATION
  Report Type: Spontaneous
  Country: US (occurrence: US)
  Receive Date: 20130923
  Receipt Date: 20130923
  Transmission Date: 20140515
  Serious: Yes (Other)
  Sender: FDA-Public Use
  Company Number: US-PFIZER INC-2013272738

PATIENT
  Age: 30 Year
  Sex: Female
  Weight: 73.02 kg

DRUGS (5)
  1. ZOLOFT [Suspect]
     Indication: DEPRESSION
     Dosage: 200MG IN THE MORNING AND 100MG IN THE EVENING
     Route: 048
     Dates: start: 2013
  2. ZOLOFT [Suspect]
     Indication: ANXIETY
  3. ZOLOFT [Suspect]
     Indication: PANIC ATTACK
  4. KLONOPIN [Concomitant]
     Dosage: UNK, AS NEEDED
  5. SPIRONOLACTONE [Concomitant]
     Dosage: 50 MG, 1X/DAY

REACTIONS (9)
  - Abnormal behaviour [Not Recovered/Not Resolved]
  - Thinking abnormal [Not Recovered/Not Resolved]
  - Memory impairment [Not Recovered/Not Resolved]
  - Disturbance in attention [Not Recovered/Not Resolved]
  - Confusional state [Not Recovered/Not Resolved]
  - Speech disorder [Not Recovered/Not Resolved]
  - Personality change [Not Recovered/Not Resolved]
  - Aggression [Not Recovered/Not Resolved]
  - Micturition urgency [Not Recovered/Not Resolved]
